FAERS Safety Report 7649557-8 (Version None)
Quarter: 2011Q3

REPORT INFORMATION
  Report Type: 
  Country: None (occurrence: None)
  Receive Date: 20110802
  Receipt Date: 20110419
  Transmission Date: 20111222
  Serious: Yes (Other)
  Sender: FDA-Public Use
  Company Number: US-PERRIGO-11US003314

PATIENT
  Sex: Male
  Weight: 74.83 kg

DRUGS (1)
  1. MINOXIDIL [Suspect]
     Indication: ANDROGENETIC ALOPECIA
     Dosage: 1 APPLICATION, BID
     Route: 061
     Dates: start: 20080401

REACTIONS (2)
  - TACHYCARDIA [None]
  - ATRIAL FIBRILLATION [None]
